FAERS Safety Report 8078956-8 (Version None)
Quarter: 2012Q1

REPORT INFORMATION
  Report Type: 
  Country: None (occurrence: None)
  Receive Date: 20120128
  Receipt Date: 20110620
  Transmission Date: 20120608
  Serious: No
  Sender: FDA-Public Use
  Company Number: US-ABBOTT-11P-163-0734039-00

PATIENT
  Age: 48 Year
  Sex: Female

DRUGS (6)
  1. CLOBETASOL [Concomitant]
     Indication: PSORIASIS
     Dosage: 0.5 DAILY
  2. SYNTHROID [Concomitant]
     Indication: HYPOTHYROIDISM
     Dosage: 1.5 MCG - DAILY
  3. HUMIRA [Suspect]
     Indication: PSORIASIS
     Dates: start: 20110119
  4. HYDROCODONE BITARTRATE [Concomitant]
     Indication: ARTHRITIS
     Dosage: RARELY TAKES
  5. FLEXERIL [Concomitant]
     Indication: ARTHRALGIA
     Dosage: 10 MG - DAILY
  6. CALCIUM+VIT D [Concomitant]
     Indication: PRODUCT USED FOR UNKNOWN INDICATION

REACTIONS (2)
  - INJECTION SITE PAIN [None]
  - INJECTION SITE HAEMATOMA [None]
